FAERS Safety Report 9800692 (Version 1)
Quarter: 2014Q1

REPORT INFORMATION
  Report Type: Spontaneous
  Country: US (occurrence: US)
  Receive Date: 20140107
  Receipt Date: 20140107
  Transmission Date: 20141002
  Serious: No
  Sender: FDA-Public Use
  Company Number: US-009507513-1401USA001126

PATIENT
  Age: 24 Year
  Sex: Female
  Weight: 54.65 kg

DRUGS (1)
  1. NEXPLANON [Suspect]
     Indication: CONTRACEPTION
     Dosage: UNK, 3 YEAR IMPLANT
     Route: 059
     Dates: start: 20120718

REACTIONS (2)
  - Amenorrhoea [Recovered/Resolved]
  - Haemorrhage [Unknown]
